FAERS Safety Report 25682583 (Version 1)
Quarter: 2025Q3

REPORT INFORMATION
  Report Type: Spontaneous
  Country: EU (occurrence: EU)
  Receive Date: 20250814
  Receipt Date: 20250814
  Transmission Date: 20251020
  Serious: Yes (Other)
  Sender: BIOVITRUM
  Company Number: EU-BIOVITRUM-2025-FR-011016

PATIENT

DRUGS (1)
  1. KINERET [Suspect]
     Active Substance: ANAKINRA
     Indication: Product used for unknown indication

REACTIONS (20)
  - Weight decreased [Recovered/Resolved]
  - Asthenia [Recovered/Resolved]
  - Decreased appetite [Recovered/Resolved]
  - Hyponatraemia [Recovered/Resolved]
  - Blood creatinine increased [Recovered/Resolved]
  - Hypotension [Recovered/Resolved]
  - Haematemesis [Recovered/Resolved]
  - Cataract [Recovered/Resolved]
  - Gamma-glutamyltransferase increased [Unknown]
  - Erysipelas [Recovered/Resolved]
  - Dermatosis [Recovered/Resolved]
  - Headache [Recovered/Resolved]
  - Osteopenia [Unknown]
  - Urinary tract infection [Recovered/Resolved]
  - Hyperleukocytosis [Recovered/Resolved]
  - Anaemia [Recovered/Resolved]
  - Blood glucose fluctuation [Recovered/Resolved]
  - Weight increased [Unknown]
  - Proteinuria [Unknown]
  - Condition aggravated [Recovered/Resolved]

NARRATIVE: CASE EVENT DATE: 20180601
